FAERS Safety Report 16790818 (Version 1)
Quarter: 2019Q3

REPORT INFORMATION
  Report Type: Spontaneous
  Country: GB (occurrence: GB)
  Receive Date: 20190910
  Receipt Date: 20190910
  Transmission Date: 20191005
  Serious: Yes (Other)
  Sender: FDA-Public Use
  Company Number: GB-PFIZER INC-2019384071

PATIENT
  Age: 36 Year
  Sex: Female

DRUGS (2)
  1. AMOXICILLINE ATHLONE [Suspect]
     Active Substance: AMOXICILLIN
     Dosage: 500 MG, UNK
     Dates: start: 20190813
  2. IBUPROFEN. [Suspect]
     Active Substance: IBUPROFEN
     Dosage: UNK

REACTIONS (6)
  - Throat tightness [Unknown]
  - Dyspnoea [Recovering/Resolving]
  - Swelling [Recovering/Resolving]
  - Flushing [Recovering/Resolving]
  - Dysphagia [Unknown]
  - Lacrimation increased [Unknown]

NARRATIVE: CASE EVENT DATE: 20190813
